FAERS Safety Report 14709506 (Version 2)
Quarter: 2018Q2

REPORT INFORMATION
  Report Type: Report from Study
  Country: US (occurrence: US)
  Receive Date: 20180403
  Receipt Date: 20180424
  Transmission Date: 20180711
  Serious: Yes (Hospitalization)
  Sender: FDA-Public Use
  Company Number: PHHO2018US001807

PATIENT
  Age: 49 Year
  Sex: Male
  Weight: 145 kg

DRUGS (2)
  1. AFINITOR [Suspect]
     Active Substance: EVEROLIMUS
     Indication: LEIOMYOSARCOMA
     Dosage: 2.5 MG, QD
     Route: 048
     Dates: start: 20171204, end: 20180118
  2. KISQALI [Suspect]
     Active Substance: RIBOCICLIB
     Indication: LEIOMYOSARCOMA
     Dosage: 300 MG, QD
     Route: 048
     Dates: start: 20171204, end: 20180118

REACTIONS (2)
  - Pyrexia [Recovered/Resolved]
  - Septic shock [Unknown]

NARRATIVE: CASE EVENT DATE: 20180117
